FAERS Safety Report 10075502 (Version 1)
Quarter: 2014Q2

REPORT INFORMATION
  Report Type: Spontaneous
  Country: US (occurrence: None)
  Receive Date: 20140411
  Receipt Date: 20140411
  Transmission Date: 20141212
  Serious: Yes (Other)
  Sender: FDA-Public Use
  Company Number: None

PATIENT
  Age: 47 Year
  Sex: Female
  Weight: 48 kg

DRUGS (2)
  1. 5-FLUOROURACIL [Suspect]
     Dosage: 5FU CONTINUOUS PUMP
  2. OXALIPLATIN [Suspect]

REACTIONS (1)
  - Neutrophil count abnormal [None]
